FAERS Safety Report 12127017 (Version 2)
Quarter: 2016Q1

REPORT INFORMATION
  Report Type: Spontaneous
  Country: US (occurrence: US)
  Receive Date: 20160229
  Receipt Date: 20160323
  Transmission Date: 20160526
  Serious: Yes (Death, Other)
  Sender: FDA-Public Use
  Company Number: US-009507513-1602USA012385

PATIENT
  Age: 69 Year
  Sex: Male

DRUGS (4)
  1. KEYTRUDA [Suspect]
     Active Substance: PEMBROLIZUMAB
     Dosage: SECOND INFUSION
     Dates: start: 20151228, end: 20151228
  2. KEYTRUDA [Suspect]
     Active Substance: PEMBROLIZUMAB
     Dosage: UNK
  3. KEYTRUDA [Suspect]
     Active Substance: PEMBROLIZUMAB
     Dosage: THIRD INFUSION
     Dates: start: 20160119, end: 20160119
  4. KEYTRUDA [Suspect]
     Active Substance: PEMBROLIZUMAB
     Dosage: FIRST INFUSION
     Dates: start: 20151207, end: 20151207

REACTIONS (3)
  - Oesophageal carcinoma [Unknown]
  - Metastatic neoplasm [Unknown]
  - Death [Fatal]

NARRATIVE: CASE EVENT DATE: 20160217
